FAERS Safety Report 6178277-4 (Version None)
Quarter: 2009Q2

REPORT INFORMATION
  Report Type: 
  Country: None (occurrence: None)
  Receive Date: 20090504
  Receipt Date: 20090424
  Transmission Date: 20091009
  Serious: Yes (Other)
  Sender: FDA-Public Use
  Company Number: B0566781A

PATIENT
  Sex: Female

DRUGS (2)
  1. SERETIDE [Suspect]
     Route: 055
     Dates: start: 20081020
  2. SALBUTAMOL [Concomitant]
     Route: 065

REACTIONS (1)
  - HYPERTENSIVE CRISIS [None]
